FAERS Safety Report 10788685 (Version 1)
Quarter: 2015Q1

REPORT INFORMATION
  Report Type: Spontaneous
  Country: PT (occurrence: PT)
  Receive Date: 20150212
  Receipt Date: 20150212
  Transmission Date: 20150721
  Serious: Yes (Death, Other)
  Sender: FDA-Public Use
  Company Number: PT-CELGENE-PRT-2015020886

PATIENT
  Age: 64 Year
  Sex: Male

DRUGS (7)
  1. EPOETINA BETA [Concomitant]
     Indication: PLASMA CELL MYELOMA
     Dosage: 30000U
     Route: 065
     Dates: start: 20140918
  2. REVLIMID [Suspect]
     Active Substance: LENALIDOMIDE
     Route: 048
     Dates: start: 20141211
  3. EPOETINA BETA [Concomitant]
     Dosage: 30000U
     Route: 065
     Dates: start: 20141211
  4. DEXAMETHASONE. [Concomitant]
     Active Substance: DEXAMETHASONE
     Indication: PLASMA CELL MYELOMA
     Route: 065
     Dates: start: 20140822
  5. DEXAMETHASONE. [Concomitant]
     Active Substance: DEXAMETHASONE
     Route: 065
     Dates: start: 20141211
  6. DEXAMETHASONE. [Concomitant]
     Active Substance: DEXAMETHASONE
     Route: 065
     Dates: start: 201303
  7. REVLIMID [Suspect]
     Active Substance: LENALIDOMIDE
     Indication: PLASMA CELL MYELOMA
     Route: 048
     Dates: start: 20140822

REACTIONS (7)
  - Plasma cell myeloma [Unknown]
  - Death [Fatal]
  - Thrombocytopenia [Unknown]
  - Chest pain [Unknown]
  - Anaemia [Unknown]
  - Respiratory tract infection [Unknown]
  - Effusion [Unknown]

NARRATIVE: CASE EVENT DATE: 20141211
